FAERS Safety Report 20719665 (Version 3)
Quarter: 2022Q2

REPORT INFORMATION
  Report Type: Spontaneous
  Country: US (occurrence: US)
  Receive Date: 20220418
  Receipt Date: 20220511
  Transmission Date: 20220720
  Serious: Yes (Hospitalization, Other)
  Sender: FDA-Public Use
  Company Number: US-BoehringerIngelheim-2022-BI-165220

PATIENT
  Age: 74 Year
  Sex: Male

DRUGS (2)
  1. OFEV [Suspect]
     Active Substance: NINTEDANIB
     Indication: Idiopathic pulmonary fibrosis
     Route: 065
     Dates: start: 20220317, end: 20220411
  2. OFEV [Suspect]
     Active Substance: NINTEDANIB
     Dates: end: 20220428

REACTIONS (11)
  - Dehydration [Recovered/Resolved]
  - Emphysema [Not Recovered/Not Resolved]
  - Sepsis [Recovered/Resolved]
  - Respiration abnormal [Not Recovered/Not Resolved]
  - Oxygen saturation decreased [Not Recovered/Not Resolved]
  - Feeling cold [Recovered/Resolved]
  - Renal impairment [Recovered/Resolved]
  - Haemoptysis [Recovered/Resolved]
  - Haemoptysis [Not Recovered/Not Resolved]
  - Productive cough [Not Recovered/Not Resolved]
  - Blood sodium decreased [Recovered/Resolved]

NARRATIVE: CASE EVENT DATE: 20220301
